FAERS Safety Report 14457702 (Version 20)
Quarter: 2022Q4

REPORT INFORMATION
  Report Type: Spontaneous
  Country: GB (occurrence: GB)
  Receive Date: 20180130
  Receipt Date: 20221219
  Transmission Date: 20230113
  Serious: Yes (Other)
  Sender: FDA-Public Use
  Company Number: PHHY2017GB199493

PATIENT
  Age: 73 Year
  Sex: Female
  Weight: 50 kg

DRUGS (56)
  1. ALLOPURINOL [Suspect]
     Active Substance: ALLOPURINOL
     Indication: Product used for unknown indication
     Dosage: 300 MG, QD
     Route: 065
     Dates: start: 20171104, end: 20171120
  2. ALLOPURINOL [Suspect]
     Active Substance: ALLOPURINOL
     Dosage: 300 MG, QD
     Route: 065
     Dates: start: 20171120
  3. ALLOPURINOL [Suspect]
     Active Substance: ALLOPURINOL
     Dosage: 120 MG
     Route: 065
  4. ALLOPURINOL [Suspect]
     Active Substance: ALLOPURINOL
     Dosage: 30 MG, QD
     Route: 065
     Dates: start: 20171104
  5. MELPHALAN [Suspect]
     Active Substance: MELPHALAN
     Indication: Plasma cell leukaemia
     Dosage: 14 MG, QD
     Route: 065
     Dates: start: 20171103, end: 20171103
  6. MELPHALAN [Suspect]
     Active Substance: MELPHALAN
     Dosage: 14 MG, QD (DAILY1 CYCLE)
     Route: 065
     Dates: start: 20171107, end: 20171110
  7. MELPHALAN [Suspect]
     Active Substance: MELPHALAN
     Dosage: UNK
     Route: 065
     Dates: start: 20171110, end: 20171114
  8. MELPHALAN [Suspect]
     Active Substance: MELPHALAN
     Dosage: 14 MG, QD
     Route: 065
     Dates: start: 20171106, end: 20171106
  9. MELPHALAN [Suspect]
     Active Substance: MELPHALAN
     Dosage: 14 MG, QD (1 CYCLE)
     Route: 065
     Dates: start: 20171110, end: 20171110
  10. MELPHALAN [Suspect]
     Active Substance: MELPHALAN
     Dosage: 14 MG
     Route: 065
     Dates: start: 201711, end: 20171107
  11. MELPHALAN [Suspect]
     Active Substance: MELPHALAN
     Dosage: 14 MG (1 CYCLE)
     Route: 065
  12. MELPHALAN [Suspect]
     Active Substance: MELPHALAN
     Dosage: 14 MG
     Route: 065
     Dates: start: 20171103, end: 20171106
  13. MELPHALAN [Suspect]
     Active Substance: MELPHALAN
     Dosage: 56 MG, QD
     Route: 065
     Dates: start: 20171106, end: 20171106
  14. MELPHALAN [Suspect]
     Active Substance: MELPHALAN
     Dosage: 266 MG
     Route: 065
  15. MELPHALAN [Suspect]
     Active Substance: MELPHALAN
     Dosage: 42 MG
     Route: 065
     Dates: start: 20171103, end: 20171106
  16. MELPHALAN [Suspect]
     Active Substance: MELPHALAN
     Dosage: UNK
     Route: 065
     Dates: start: 201711, end: 20171107
  17. PREDNISONE [Suspect]
     Active Substance: PREDNISONE
     Indication: Plasma cell leukaemia
     Dosage: 70 MG, QD (1 CYCLE)
     Route: 065
     Dates: start: 20171103, end: 20171103
  18. PREDNISONE [Suspect]
     Active Substance: PREDNISONE
     Dosage: 70 MG, QD (1 CYCLE)
     Route: 065
     Dates: start: 20171106, end: 20171106
  19. OMEPRAZOLE [Suspect]
     Active Substance: OMEPRAZOLE
     Indication: Product used for unknown indication
     Dosage: 20 MG, QD (UNSPECIFIED, EVERY MORNING)
     Route: 065
  20. OMEPRAZOLE [Suspect]
     Active Substance: OMEPRAZOLE
     Dosage: 10 MG, QD
     Route: 048
  21. SERTRALINE [Suspect]
     Active Substance: SERTRALINE HYDROCHLORIDE
     Indication: Product used for unknown indication
     Dosage: 50 MG, QD
     Route: 065
  22. RAMIPRIL [Suspect]
     Active Substance: RAMIPRIL
     Indication: Product used for unknown indication
     Dosage: 10 MG, QD (UNSPECIFIED, EVERY MORNING)
     Route: 065
  23. RAMIPRIL [Suspect]
     Active Substance: RAMIPRIL
     Dosage: 10 MG, QD (EVERY MORNING)
     Route: 048
  24. DEXAMETHASONE [Suspect]
     Active Substance: DEXAMETHASONE
     Indication: Product used for unknown indication
     Dosage: 20 MG, QD
     Route: 065
  25. DEXAMETHASONE [Suspect]
     Active Substance: DEXAMETHASONE
     Dosage: 20 MG, QD (TABLET)
     Route: 065
     Dates: start: 20171102, end: 20171106
  26. DEXAMETHASONE [Suspect]
     Active Substance: DEXAMETHASONE
     Dosage: 100 MG
     Route: 065
  27. DEXAMETHASONE [Suspect]
     Active Substance: DEXAMETHASONE
     Dosage: 200 MG
     Route: 065
  28. FENTANYL CITRATE [Suspect]
     Active Substance: FENTANYL CITRATE
     Indication: Product used for unknown indication
     Dosage: 12 UG
     Route: 055
     Dates: start: 20171108
  29. BENDROFLUMETHIAZIDE [Suspect]
     Active Substance: BENDROFLUMETHIAZIDE
     Indication: Product used for unknown indication
     Dosage: 10 MG, QD
     Route: 065
  30. BENDROFLUMETHIAZIDE [Suspect]
     Active Substance: BENDROFLUMETHIAZIDE
     Dosage: 2 MG
     Route: 065
     Dates: start: 20171107, end: 201711
  31. BENDROFLUMETHIAZIDE [Suspect]
     Active Substance: BENDROFLUMETHIAZIDE
     Dosage: 3 MG, QD
     Route: 065
     Dates: start: 20171107, end: 201711
  32. BENDROFLUMETHIAZIDE [Suspect]
     Active Substance: BENDROFLUMETHIAZIDE
     Dosage: 3 MG, QD
     Route: 065
     Dates: start: 20171107, end: 201711
  33. BENDROFLUMETHIAZIDE [Suspect]
     Active Substance: BENDROFLUMETHIAZIDE
     Dosage: 6 MG
     Route: 065
  34. BENDROFLUMETHIAZIDE [Suspect]
     Active Substance: BENDROFLUMETHIAZIDE
     Dosage: 2.5 MG (2 MG, ONCE A DAY)
     Route: 065
     Dates: start: 20171103, end: 20171103
  35. BENDROFLUMETHIAZIDE [Suspect]
     Active Substance: BENDROFLUMETHIAZIDE
     Dosage: 2.5 MG, QD
     Route: 065
  36. BENDROFLUMETHIAZIDE [Suspect]
     Active Substance: BENDROFLUMETHIAZIDE
     Dosage: 1.8 MG/M2 Q_CYCLE / 1.3 MG/M2
     Route: 065
  37. BENDROFLUMETHIAZIDE [Suspect]
     Active Substance: BENDROFLUMETHIAZIDE
     Dosage: 2 MG
     Route: 065
     Dates: start: 20171110, end: 20171114
  38. METOCLOPRAMIDE [Suspect]
     Active Substance: METOCLOPRAMIDE
     Indication: Product used for unknown indication
     Dosage: 10 MG, PRN (AS NECESSARY)
     Route: 065
  39. METOCLOPRAMIDE [Suspect]
     Active Substance: METOCLOPRAMIDE
     Dosage: 20 MG, QD
     Route: 065
  40. METOCLOPRAMIDE [Suspect]
     Active Substance: METOCLOPRAMIDE
     Dosage: 10 MG, QD
     Route: 065
  41. VELCADE [Suspect]
     Active Substance: BORTEZOMIB
     Indication: Plasma cell leukaemia
     Dosage: 1.3 MG/M2 (1 CYCLE)
     Route: 058
     Dates: start: 20171106, end: 20171106
  42. VELCADE [Suspect]
     Active Substance: BORTEZOMIB
     Dosage: 1.8 MG
     Route: 058
     Dates: start: 20171110, end: 20171114
  43. VELCADE [Suspect]
     Active Substance: BORTEZOMIB
     Dosage: 1.3 MG/M2, 1 CYCLE
     Route: 058
     Dates: start: 20171103, end: 20171103
  44. VELCADE [Suspect]
     Active Substance: BORTEZOMIB
     Dosage: 1.3 MG/M2, 1 CYCLE
     Route: 058
     Dates: start: 20171110, end: 20171110
  45. VELCADE [Suspect]
     Active Substance: BORTEZOMIB
     Dosage: 1.8 MG/M2
     Route: 058
     Dates: start: 20171107, end: 201711
  46. VELCADE [Suspect]
     Active Substance: BORTEZOMIB
     Dosage: 1.8 MG/M2, 1 CYCLE
     Route: 058
     Dates: start: 20171103, end: 20171103
  47. VELCADE [Suspect]
     Active Substance: BORTEZOMIB
     Dosage: 2 MG/M2
     Route: 058
  48. SODIUM CHLORIDE [Suspect]
     Active Substance: SODIUM CHLORIDE
     Indication: Medication dilution
     Dosage: UNK (1 CYCLE)
     Route: 041
     Dates: start: 20171110, end: 20171114
  49. SODIUM CHLORIDE [Suspect]
     Active Substance: SODIUM CHLORIDE
     Dosage: UNK
     Route: 065
  50. SODIUM CHLORIDE [Suspect]
     Active Substance: SODIUM CHLORIDE
     Dosage: UNK, QD
     Route: 041
     Dates: start: 20171107, end: 201711
  51. SODIUM CHLORIDE [Suspect]
     Active Substance: SODIUM CHLORIDE
     Dosage: UNK (1 CYCLE)
     Route: 041
     Dates: start: 20171103, end: 20171106
  52. SODIUM CHLORIDE [Suspect]
     Active Substance: SODIUM CHLORIDE
     Dosage: UNK (1 CYCLE)
     Route: 065
     Dates: start: 20171103, end: 20171103
  53. SODIUM CHLORIDE [Suspect]
     Active Substance: SODIUM CHLORIDE
     Dosage: UNK (1 CYCLE)
     Route: 041
     Dates: start: 20171106, end: 20171106
  54. SODIUM CHLORIDE [Suspect]
     Active Substance: SODIUM CHLORIDE
     Dosage: UNK (1 CYCLE)
     Route: 065
     Dates: start: 20171110, end: 20171110
  55. FENTANYL [Suspect]
     Active Substance: FENTANYL
     Indication: Product used for unknown indication
     Dosage: UNK, QH
     Route: 062
     Dates: start: 20171108
  56. FENTANYL CITRATE [Suspect]
     Active Substance: FENTANYL CITRATE
     Indication: Product used for unknown indication
     Dosage: 12 UG (12 MICROGAM)
     Dates: start: 20171108

REACTIONS (14)
  - Disturbance in social behaviour [Recovered/Resolved]
  - Abnormal behaviour [Recovered/Resolved]
  - Paranoia [Recovered/Resolved]
  - Hallucination [Recovered/Resolved]
  - Disorientation [Recovered/Resolved]
  - Emotional distress [Not Recovered/Not Resolved]
  - Agitation [Recovered/Resolved]
  - Confusional state [Recovered/Resolved]
  - Drug abuse [Unknown]
  - Product use in unapproved indication [Unknown]
  - Intentional product misuse [Unknown]
  - Medication error [Unknown]
  - Incorrect route of product administration [Unknown]
  - Off label use [Unknown]

NARRATIVE: CASE EVENT DATE: 20171107
